FAERS Safety Report 5716008-X (Version None)
Quarter: 2008Q2

REPORT INFORMATION
  Report Type: 
  Country: None (occurrence: None)
  Receive Date: 20080422
  Receipt Date: 20080211
  Transmission Date: 20081010
  Serious: No
  Sender: FDA-Public Use
  Company Number: APP200800093

PATIENT
  Age: 67 Year
  Sex: Male
  Weight: 88.5 kg

DRUGS (3)
  1. HEPARIN SODIUM INJECTION [Suspect]
     Indication: HAEMODIALYSIS
     Dosage: 5 ML, EACH DIALYSIS TREATMENT, INTRAVENOUS BOLUS
     Route: 040
     Dates: start: 20071222
  2. EPOGEN [Concomitant]
  3. ZEMPLAR [Concomitant]

REACTIONS (1)
  - HAEMORRHAGE [None]
